FAERS Safety Report 17459233 (Version 9)
Quarter: 2020Q3

REPORT INFORMATION
  Report Type: Spontaneous
  Country: US (occurrence: US)
  Receive Date: 20200225
  Receipt Date: 20200811
  Transmission Date: 20201102
  Serious: Yes (Other)
  Sender: FDA-Public Use
  Company Number: US-CATALYST PHARMACEUTICALS, INC-2020CAT00036

PATIENT
  Age: 69 Year
  Sex: Female
  Weight: 72.56 kg

DRUGS (8)
  1. FIRDAPSE [Suspect]
     Active Substance: AMIFAMPRIDINE PHOSPHATE
     Dosage: 5 MG, 4X/DAY
     Route: 048
     Dates: start: 2020, end: 20200520
  2. FIRDAPSE [Suspect]
     Active Substance: AMIFAMPRIDINE PHOSPHATE
     Indication: MYASTHENIC SYNDROME
     Dosage: 5 MG, 4X/DAY
     Route: 048
     Dates: start: 20191212, end: 20200131
  3. FIRDAPSE [Suspect]
     Active Substance: AMIFAMPRIDINE PHOSPHATE
     Dosage: 10 MG, 1X/DAY
     Route: 048
     Dates: end: 2020
  4. FIRDAPSE [Suspect]
     Active Substance: AMIFAMPRIDINE PHOSPHATE
     Dosage: 30 MG PER DAY
     Route: 048
     Dates: start: 20200525
  5. 6 UNSPECIFIED OTHER MEDICATIONS [Concomitant]
  6. FIRDAPSE [Suspect]
     Active Substance: AMIFAMPRIDINE PHOSPHATE
     Dosage: 5 MG, 4X/DAY
     Route: 048
  7. UNSPECIFIED CHEMOTHERAPY [Suspect]
     Active Substance: UNSPECIFIED INGREDIENT
     Indication: SMALL CELL LUNG CANCER
     Dosage: UNK
     Dates: start: 201911, end: 20200131
  8. FIRDAPSE [Suspect]
     Active Substance: AMIFAMPRIDINE PHOSPHATE
     Dosage: 5 MG, 3X/DAY
     Route: 048
     Dates: start: 2020, end: 2020

REACTIONS (12)
  - Scar [Not Recovered/Not Resolved]
  - Pneumonia [Not Recovered/Not Resolved]
  - Dysphagia [Recovered/Resolved]
  - Rash pruritic [Recovered/Resolved]
  - Visual impairment [Recovered/Resolved]
  - Pulmonary mass [Not Recovered/Not Resolved]
  - Feeding disorder [Not Recovered/Not Resolved]
  - Pruritus [Recovered/Resolved]
  - Optic nerve disorder [Recovering/Resolving]
  - Scratch [Recovering/Resolving]
  - Urticaria [Recovered/Resolved]
  - Pain in extremity [Recovering/Resolving]

NARRATIVE: CASE EVENT DATE: 202006
